FAERS Safety Report 9564705 (Version 4)
Quarter: 2014Q3

REPORT INFORMATION
  Report Type: Report from Study
  Country: JP (occurrence: JP)
  Receive Date: 20130930
  Receipt Date: 20140915
  Transmission Date: 20150326
  Serious: Yes (Life-Threatening, Hospitalization, Other)
  Sender: FDA-Public Use
  Company Number: JP-CELGENEUS-087-50794-13094068

PATIENT
  Age: 62 Year
  Sex: Female
  Weight: 48 kg

DRUGS (43)
  1. VIDAZA [Suspect]
     Active Substance: AZACITIDINE
     Dosage: 75 MILLIGRAM/SQ. METER
     Route: 041
     Dates: start: 20110811, end: 20110815
  2. VIDAZA [Suspect]
     Active Substance: AZACITIDINE
     Dosage: 75 MILLIGRAM/SQ. METER
     Route: 041
     Dates: start: 20130119, end: 20130123
  3. AZUNOL GARGLE LAZULENE SULFONATE SODIUM [Concomitant]
     Indication: PRODUCT USED FOR UNKNOWN INDICATION
     Route: 065
     Dates: start: 20120519
  4. PROTECADIN [Concomitant]
     Active Substance: LAFUTIDINE
     Indication: PRODUCT USED FOR UNKNOWN INDICATION
     Route: 065
     Dates: start: 20110617, end: 20111214
  5. VIDAZA [Suspect]
     Active Substance: AZACITIDINE
     Dosage: 75 MILLIGRAM/SQ. METER
     Route: 041
     Dates: start: 20110908, end: 20110912
  6. VIDAZA [Suspect]
     Active Substance: AZACITIDINE
     Dosage: 75 MILLIGRAM/SQ. METER
     Route: 041
     Dates: start: 20120912, end: 20120916
  7. VIDAZA [Suspect]
     Active Substance: AZACITIDINE
     Dosage: 75 MILLIGRAM/SQ. METER
     Route: 041
     Dates: start: 20130219, end: 20130223
  8. MUCOSAL [Concomitant]
     Indication: PRODUCT USED FOR UNKNOWN INDICATION
     Route: 065
     Dates: start: 20120720
  9. VIDAZA [Suspect]
     Active Substance: AZACITIDINE
     Dosage: 75 MILLIGRAM/SQ. METER
     Route: 041
     Dates: start: 20120712, end: 20120716
  10. VIDAZA [Suspect]
     Active Substance: AZACITIDINE
     Dosage: 75 MILLIGRAM/SQ. METER
     Route: 041
     Dates: start: 20121110, end: 20121114
  11. PROTECADIN [Concomitant]
     Active Substance: LAFUTIDINE
     Route: 065
     Dates: start: 20120617
  12. LAC-B [Concomitant]
     Active Substance: BIFIDOBACTERIUM SPP.
     Indication: PRODUCT USED FOR UNKNOWN INDICATION
     Route: 065
     Dates: start: 20110617, end: 20111214
  13. ISCOTIN [Concomitant]
     Active Substance: ISONIAZID
     Indication: PRODUCT USED FOR UNKNOWN INDICATION
     Route: 065
     Dates: start: 20110617, end: 20111214
  14. SEROTONE [Concomitant]
     Active Substance: AZASETRON HYDROCHLORIDE
     Indication: PRODUCT USED FOR UNKNOWN INDICATION
     Route: 065
     Dates: start: 20120517
  15. VIDAZA [Suspect]
     Active Substance: AZACITIDINE
     Dosage: 75 MILLIGRAM/SQ. METER
     Route: 041
     Dates: start: 20111006, end: 20111010
  16. VIDAZA [Suspect]
     Active Substance: AZACITIDINE
     Dosage: 75 MILLIGRAM/SQ. METER
     Route: 041
     Dates: start: 20111204, end: 20111208
  17. VIDAZA [Suspect]
     Active Substance: AZACITIDINE
     Dosage: 75 MILLIGRAM/SQ. METER
     Route: 041
     Dates: start: 20121213, end: 20121217
  18. VIDAZA [Suspect]
     Active Substance: AZACITIDINE
     Dosage: 75 MILLIGRAM/SQ. METER
     Route: 041
     Dates: start: 20130403, end: 20130407
  19. RIBALL [Concomitant]
     Active Substance: ALLOPURINOL
     Indication: PRODUCT USED FOR UNKNOWN INDICATION
     Route: 065
     Dates: start: 20110617, end: 20111214
  20. ISCOTIN [Concomitant]
     Active Substance: ISONIAZID
     Route: 065
     Dates: start: 20120617
  21. VIDAZA [Suspect]
     Active Substance: AZACITIDINE
     Dosage: 75 MILLIGRAM/SQ. METER
     Route: 041
     Dates: start: 20111103, end: 20111107
  22. VIDAZA [Suspect]
     Active Substance: AZACITIDINE
     Dosage: 75 MILLIGRAM/SQ. METER
     Route: 041
     Dates: start: 20130613, end: 20130617
  23. NEUQUINON [Concomitant]
     Active Substance: UBIDECARENONE
     Indication: PRODUCT USED FOR UNKNOWN INDICATION
     Route: 065
     Dates: start: 20110617, end: 20111214
  24. NAUZELIN [Concomitant]
     Active Substance: DOMPERIDONE
     Indication: PRODUCT USED FOR UNKNOWN INDICATION
     Route: 065
     Dates: start: 20111008, end: 20111112
  25. SENNOSIDE [Concomitant]
     Active Substance: SENNOSIDES
     Indication: PRODUCT USED FOR UNKNOWN INDICATION
     Route: 065
     Dates: start: 20111213, end: 20120111
  26. MYCOSYST [Concomitant]
     Active Substance: FLUCONAZOLE
     Indication: PRODUCT USED FOR UNKNOWN INDICATION
     Route: 065
     Dates: start: 20120617, end: 20120909
  27. CRAVIT [Concomitant]
     Active Substance: LEVOFLOXACIN
     Indication: PRODUCT USED FOR UNKNOWN INDICATION
     Route: 065
     Dates: start: 20120720, end: 20120723
  28. LOXOPROFEN [Concomitant]
     Active Substance: LOXOPROFEN
     Indication: PRODUCT USED FOR UNKNOWN INDICATION
     Route: 065
     Dates: start: 20120720
  29. VIDAZA [Suspect]
     Active Substance: AZACITIDINE
     Dosage: 75 MILLIGRAM/SQ. METER
     Route: 041
     Dates: start: 20121012, end: 20121016
  30. MAGMITT [Concomitant]
     Active Substance: MAGNESIUM OXIDE
     Indication: PRODUCT USED FOR UNKNOWN INDICATION
     Route: 065
     Dates: start: 20110708, end: 20120111
  31. BAKTAR [Concomitant]
     Active Substance: SULFAMETHOXAZOLE\TRIMETHOPRIM
     Indication: PRODUCT USED FOR UNKNOWN INDICATION
     Route: 065
     Dates: start: 20110617, end: 20111214
  32. NAUZELIN [Concomitant]
     Active Substance: DOMPERIDONE
     Route: 065
     Dates: start: 20120519
  33. VIDAZA [Suspect]
     Active Substance: AZACITIDINE
     Dosage: 75 MILLIGRAM/SQ. METER
     Route: 041
     Dates: start: 20120517, end: 20120521
  34. BAKTAR [Concomitant]
     Active Substance: SULFAMETHOXAZOLE\TRIMETHOPRIM
     Route: 065
     Dates: start: 20120617
  35. MUCODYNE [Concomitant]
     Active Substance: CARBOCYSTEINE
     Indication: PRODUCT USED FOR UNKNOWN INDICATION
     Route: 065
     Dates: start: 20120720
  36. ALLELOCK [Concomitant]
     Active Substance: OLOPATADINE HYDROCHLORIDE
     Indication: PRODUCT USED FOR UNKNOWN INDICATION
     Route: 065
     Dates: start: 20120804
  37. VIDAZA [Suspect]
     Active Substance: AZACITIDINE
     Indication: MYELODYSPLASTIC SYNDROME
     Dosage: 75 MILLIGRAM/SQ. METER
     Route: 041
     Dates: start: 20110617, end: 20110623
  38. VIDAZA [Suspect]
     Active Substance: AZACITIDINE
     Dosage: 75 MILLIGRAM/SQ. METER
     Route: 041
     Dates: start: 20120614, end: 20120618
  39. MAGMITT [Concomitant]
     Active Substance: MAGNESIUM OXIDE
     Route: 065
     Dates: start: 20120523
  40. VALTREX [Concomitant]
     Active Substance: VALACYCLOVIR HYDROCHLORIDE
     Indication: PRODUCT USED FOR UNKNOWN INDICATION
     Route: 065
     Dates: start: 20120618, end: 20120622
  41. ITRIZOLE [Concomitant]
     Active Substance: ITRACONAZOLE
     Indication: PRODUCT USED FOR UNKNOWN INDICATION
     Route: 065
     Dates: start: 20110617, end: 20111007
  42. SENNOSIDE [Concomitant]
     Active Substance: SENNOSIDES
     Route: 065
     Dates: start: 20120524, end: 20120530
  43. MYSLEE [Concomitant]
     Active Substance: ZOLPIDEM TARTRATE
     Indication: PRODUCT USED FOR UNKNOWN INDICATION
     Route: 065
     Dates: start: 20120519

REACTIONS (6)
  - Herpes zoster [Recovered/Resolved]
  - Nausea [Unknown]
  - Stress ulcer [Not Recovered/Not Resolved]
  - Upper gastrointestinal haemorrhage [Not Recovered/Not Resolved]
  - Pyrexia [Not Recovered/Not Resolved]
  - Erythema [Recovering/Resolving]

NARRATIVE: CASE EVENT DATE: 20110617
